FAERS Safety Report 9305145 (Version 5)
Quarter: 2015Q2

REPORT INFORMATION
  Report Type: Report from Study
  Country: AU (occurrence: AU)
  Receive Date: 20130523
  Receipt Date: 20150625
  Transmission Date: 20150821
  Serious: Yes (Hospitalization, Other)
  Sender: FDA-Public Use
  Company Number: PHHY2013AU051032

PATIENT
  Age: 37 Year
  Sex: Male

DRUGS (11)
  1. CLOZARIL [Suspect]
     Active Substance: CLOZAPINE
     Dosage: 350 MG, QD (NOCTE)
     Route: 048
  2. RAMIPRIL. [Concomitant]
     Active Substance: RAMIPRIL
     Indication: HYPERTENSION
     Dosage: 2.5 MG, QD (MANE)
     Route: 048
  3. ISOSORBIDE MONONITRATE. [Concomitant]
     Active Substance: ISOSORBIDE MONONITRATE
     Indication: ANGINA PECTORIS
     Dosage: 30 MG, QD (MANE)
     Route: 048
  4. ASPIRIN. [Concomitant]
     Active Substance: ASPIRIN
     Indication: PROPHYLAXIS
     Dosage: 10 MG, QD (MANE)
     Route: 048
  5. ASPIRIN. [Concomitant]
     Active Substance: ASPIRIN
     Dosage: 100 MG, QD (MANE)
     Route: 048
  6. ANGININE [Concomitant]
     Indication: ANGINA PECTORIS
     Dosage: 0.6 MG, PRN
     Route: 060
  7. CLOZARIL [Suspect]
     Active Substance: CLOZAPINE
     Indication: SCHIZOPHRENIA
     Dosage: 500 MG
     Route: 048
     Dates: start: 20050610, end: 20130520
  8. METOPROLOL [Concomitant]
     Active Substance: METOPROLOL
     Indication: HYPERTENSION
     Dosage: 50 MG, BID
     Route: 048
  9. CLOZARIL [Suspect]
     Active Substance: CLOZAPINE
     Dosage: 400 MG
     Route: 048
     Dates: start: 20130523, end: 20130730
  10. ATORVASTATIN [Concomitant]
     Active Substance: ATORVASTATIN
     Indication: BLOOD CHOLESTEROL INCREASED
     Dosage: 80 MG, QD (NOCTE)
     Route: 048
  11. CLOPIDOGREL [Concomitant]
     Active Substance: CLOPIDOGREL BISULFATE
     Indication: ARTERIAL THROMBOSIS
     Dosage: 75 MG, QD
     Route: 048

REACTIONS (16)
  - Left ventricular dysfunction [Unknown]
  - Lymphocyte count increased [Recovered/Resolved]
  - Neutrophil count increased [Recovered/Resolved]
  - Monocyte count increased [Unknown]
  - Blood creatine phosphokinase increased [Unknown]
  - Ventricular hypokinesia [Unknown]
  - White blood cell count increased [Recovering/Resolving]
  - Neutrophil count increased [Recovered/Resolved]
  - Monocyte count increased [Recovered/Resolved]
  - Coronary artery stenosis [Not Recovered/Not Resolved]
  - Lymphocyte count increased [Recovered/Resolved]
  - Lymphocyte count increased [Recovered/Resolved]
  - Coronary artery disease [Unknown]
  - Impaired self-care [Unknown]
  - Cardiac disorder [Not Recovered/Not Resolved]
  - Thinking abnormal [Unknown]

NARRATIVE: CASE EVENT DATE: 20130305
